FAERS Safety Report 21123147 (Version 1)
Quarter: 2022Q3

REPORT INFORMATION
  Report Type: Spontaneous
  Country: CO (occurrence: CO)
  Receive Date: 20220724
  Receipt Date: 20220724
  Transmission Date: 20221027
  Serious: Yes (Other)
  Sender: FDA-Public Use
  Company Number: CO-PFIZER INC-PV202200025946

PATIENT
  Age: 41 Year
  Sex: Female

DRUGS (1)
  1. ENBREL [Suspect]
     Active Substance: ETANERCEPT
     Indication: Rheumatoid arthritis
     Dosage: 50 MG, WEEKLY (TUESDAY DAYS)
     Route: 058

REACTIONS (3)
  - Pulmonary mass [Recovered/Resolved]
  - Cellulitis [Recovered/Resolved]
  - Osteomyelitis [Recovered/Resolved]
